FAERS Safety Report 16019620 (Version 2)
Quarter: 2019Q2

REPORT INFORMATION
  Report Type: Spontaneous
  Country: CA (occurrence: CA)
  Receive Date: 20190228
  Receipt Date: 20190409
  Transmission Date: 20190711
  Serious: Yes (Other)
  Sender: FDA-Public Use
  Company Number: CA-PFIZER INC-2019086754

PATIENT
  Age: 59 Year
  Sex: Male

DRUGS (7)
  1. INFLECTRA [Concomitant]
     Active Substance: INFLIXIMAB-DYYB
     Dosage: 500 MG, CYCLIC (EVERY 8 WEEKS)
     Route: 042
     Dates: start: 20170816, end: 20181018
  2. NORVASC [Suspect]
     Active Substance: AMLODIPINE BESYLATE
     Dosage: 5 MG, 1X/DAY
     Dates: start: 2013
  3. INDOMETHACIN [INDOMETACIN] [Concomitant]
     Active Substance: INDOMETHACIN
     Dosage: 1 DF, 4X/DAY
     Dates: start: 2010
  4. PANTOLOC [PANTOPRAZOLE] [Concomitant]
     Active Substance: PANTOPRAZOLE SODIUM
     Dosage: 40 MG, 1X/DAY
     Dates: start: 2010
  5. INFLECTRA [Concomitant]
     Active Substance: INFLIXIMAB-DYYB
     Dosage: 500 MG, CYCLIC (EVERY 6 WEEKS)
     Route: 042
     Dates: start: 20181206
  6. INFLECTRA [Concomitant]
     Active Substance: INFLIXIMAB-DYYB
     Indication: ANKYLOSING SPONDYLITIS
     Dosage: 400 MG, CYCLIC (EVERY 0, 2, 6 WEEKS AND THEN Q8 WEEKS)
     Route: 042
     Dates: start: 20170124, end: 20170619
  7. LYRICA [Suspect]
     Active Substance: PREGABALIN
     Dosage: UNK, 3X/DAY
     Dates: start: 2007

REACTIONS (1)
  - Type 2 diabetes mellitus [Unknown]

NARRATIVE: CASE EVENT DATE: 201901
